FAERS Safety Report 20721070 (Version 1)
Quarter: 2022Q2

REPORT INFORMATION
  Report Type: Report from Study
  Country: MX (occurrence: MX)
  Receive Date: 20220418
  Receipt Date: 20220418
  Transmission Date: 20220721
  Serious: Yes (Other)
  Sender: FDA-Public Use
  Company Number: MX-NOVARTISPH-NVSC2022MX085882

PATIENT
  Sex: Female
  Weight: 76 kg

DRUGS (1)
  1. METFORMIN HYDROCHLORIDE\VILDAGLIPTIN [Suspect]
     Active Substance: METFORMIN HYDROCHLORIDE\VILDAGLIPTIN
     Indication: Blood glucose abnormal
     Dosage: 1 DOSAGE FORM, BID
     Route: 048
     Dates: start: 2006

REACTIONS (5)
  - Cerebrovascular accident [Unknown]
  - Loss of consciousness [Unknown]
  - Speech disorder [Unknown]
  - Ill-defined disorder [Unknown]
  - Cardiac disorder [Unknown]

NARRATIVE: CASE EVENT DATE: 20190101
